FAERS Safety Report 5771660-8 (Version None)
Quarter: 2008Q2

REPORT INFORMATION
  Report Type: 
  Country: None (occurrence: None)
  Receive Date: 20080613
  Receipt Date: 20080530
  Transmission Date: 20081010
  Serious: Yes (Other)
  Sender: FDA-Public Use
  Company Number: GB-GENENTECH-258716

PATIENT
  Sex: Male
  Weight: 112 kg

DRUGS (1)
  1. BEVACIZUMAB [Suspect]
     Indication: MALIGNANT MELANOMA
     Dosage: 7.5 MG/KG, Q3W
     Route: 042
     Dates: start: 20020228, end: 20080228

REACTIONS (1)
  - BLINDNESS [None]
